FAERS Safety Report 12923285 (Version 1)
Quarter: 2016Q4

REPORT INFORMATION
  Report Type: Spontaneous
  Country: US (occurrence: US)
  Receive Date: 20161109
  Receipt Date: 20161109
  Transmission Date: 20170207
  Serious: Yes (Other)
  Sender: FDA-Public Use
  Company Number: US-BRISTOL-MYERS SQUIBB COMPANY-BMS-2016-088033

PATIENT
  Sex: Female

DRUGS (1)
  1. OPDIVO [Suspect]
     Active Substance: NIVOLUMAB
     Indication: LUNG NEOPLASM MALIGNANT
     Route: 042

REACTIONS (9)
  - Kidney infection [Unknown]
  - Back pain [Recovering/Resolving]
  - Arthralgia [Unknown]
  - Urine odour abnormal [Recovering/Resolving]
  - Insomnia [Unknown]
  - Dyspnoea [Unknown]
  - Weight decreased [Unknown]
  - Memory impairment [Recovered/Resolved]
  - Thyroid disorder [Unknown]
